FAERS Safety Report 5515516-4 (Version None)
Quarter: 2007Q4

REPORT INFORMATION
  Report Type: 
  Country: None (occurrence: None)
  Receive Date: 20071113
  Receipt Date: 20070314
  Transmission Date: 20080405
  Serious: No
  Sender: FDA-Public Use
  Company Number: A0643247A

PATIENT
  Age: 81 Year
  Sex: Male

DRUGS (6)
  1. COREG [Suspect]
     Dosage: 12.5MG PER DAY
     Route: 048
     Dates: start: 20070201
  2. LISINOPRIL [Concomitant]
  3. ZOCOR [Concomitant]
  4. ZETIA [Concomitant]
  5. ASPIRIN [Concomitant]
  6. LASIX [Concomitant]

REACTIONS (2)
  - HEART RATE INCREASED [None]
  - HEART RATE IRREGULAR [None]
